FAERS Safety Report 15348302 (Version 1)
Quarter: 2018Q3

REPORT INFORMATION
  Report Type: Spontaneous
  Country: US (occurrence: US)
  Receive Date: 20180904
  Receipt Date: 20180904
  Transmission Date: 20181010
  Serious: Yes (Other)
  Sender: FDA-Public Use
  Company Number: US-ALLERGAN-1842239US

PATIENT
  Age: 80 Year
  Sex: Female

DRUGS (1)
  1. ASACOL [Suspect]
     Active Substance: MESALAMINE
     Indication: PRODUCT USED FOR UNKNOWN INDICATION
     Dosage: 2?3, QD
     Route: 065

REACTIONS (9)
  - Anxiety [Unknown]
  - Vertigo [Unknown]
  - Seizure [Unknown]
  - Nervousness [Unknown]
  - Mental disorder [Unknown]
  - Confusional state [Unknown]
  - Insomnia [Unknown]
  - Depression [Unknown]
  - Affect lability [Unknown]
